FAERS Safety Report 26100887 (Version 1)
Quarter: 2025Q4

REPORT INFORMATION
  Report Type: Report from Study
  Country: US (occurrence: US)
  Receive Date: 20251128
  Receipt Date: 20251128
  Transmission Date: 20260117
  Serious: Yes (Hospitalization)
  Sender: UPSHER SMITH LABORATORIES
  Company Number: US-UPSHER-SMITH LABORATORIES, LLC-20251101519

PATIENT
  Sex: Female

DRUGS (1)
  1. VIGADRONE [Suspect]
     Active Substance: VIGABATRIN
     Indication: Seizure
     Dosage: 750 MG, BID (15 ML)
     Route: 048
     Dates: start: 20250613

REACTIONS (1)
  - Mouth injury [Not Recovered/Not Resolved]

NARRATIVE: CASE EVENT DATE: 20250101
